FAERS Safety Report 22222493 (Version 4)
Quarter: 2023Q2

REPORT INFORMATION
  Report Type: Report from Study
  Country: US (occurrence: US)
  Receive Date: 20230418
  Receipt Date: 20230609
  Transmission Date: 20230721
  Serious: No
  Sender: FDA-Public Use
  Company Number: US-002147023-NVSC2023US088341

PATIENT
  Sex: Female
  Weight: 73.923 kg

DRUGS (6)
  1. TREPROSTINIL [Suspect]
     Active Substance: TREPROSTINIL
     Indication: Pulmonary arterial hypertension
     Dosage: 16 NG/KG/MIN
     Route: 042
     Dates: start: 20230403
  2. TREPROSTINIL [Suspect]
     Active Substance: TREPROSTINIL
     Dosage: 38 NG/KG/MIN
     Route: 042
     Dates: start: 20230518
  3. TREPROSTINIL [Suspect]
     Active Substance: TREPROSTINIL
     Dosage: 36 NG/KG/MIN, (START DATE 2023)
     Route: 042
  4. TREPROSTINIL [Suspect]
     Active Substance: TREPROSTINIL
     Dosage: 38 NG/KG/MIN
     Route: 042
  5. TREPROSTINIL [Suspect]
     Active Substance: TREPROSTINIL
     Dosage: 18 NG/KG/MIN
     Route: 042
  6. ELIQUIS [Concomitant]
     Active Substance: APIXABAN
     Indication: Product used for unknown indication
     Dosage: UNK
     Route: 065

REACTIONS (12)
  - Peripheral swelling [Unknown]
  - Pain in extremity [Unknown]
  - Infusion site haemorrhage [Unknown]
  - Feeling jittery [Unknown]
  - Renal disorder [Recovered/Resolved]
  - Pain of skin [Unknown]
  - Varicose vein [Unknown]
  - Fatigue [Unknown]
  - Back pain [Unknown]
  - Dizziness [Unknown]
  - Asthenia [Unknown]
  - Dyspnoea [Unknown]
